FAERS Safety Report 23330966 (Version 2)
Quarter: 2024Q1

REPORT INFORMATION
  Report Type: Spontaneous
  Country: US (occurrence: US)
  Receive Date: 20231222
  Receipt Date: 20240215
  Transmission Date: 20240410
  Serious: Yes (Other)
  Sender: FDA-Public Use
  Company Number: US-ABBVIE-5542405

PATIENT

DRUGS (15)
  1. HUMIRA [Suspect]
     Active Substance: ADALIMUMAB
     Indication: Product used for unknown indication
     Route: 058
  2. XELJANZ XR [Suspect]
     Active Substance: TOFACITINIB CITRATE
     Indication: Product used for unknown indication
     Dosage: 11MG?FORM STRENGTH: 11 MILLIGRAM
     Route: 048
     Dates: start: 20231120
  3. OMEPRAZOLE [Concomitant]
     Active Substance: OMEPRAZOLE
     Indication: Product used for unknown indication
  4. TRIAMCINOLONE ACETONIDE [Concomitant]
     Active Substance: TRIAMCINOLONE ACETONIDE
     Indication: Product used for unknown indication
  5. NAPROXEN SODIUM [Concomitant]
     Active Substance: NAPROXEN\NAPROXEN SODIUM
     Indication: Product used for unknown indication
  6. ADVIL [Concomitant]
     Active Substance: IBUPROFEN
     Indication: Product used for unknown indication
  7. CELEBREX [Concomitant]
     Active Substance: CELECOXIB
     Indication: Product used for unknown indication
  8. ALBUTEROL [Concomitant]
     Active Substance: ALBUTEROL
     Indication: Product used for unknown indication
  9. XANAX [Concomitant]
     Active Substance: ALPRAZOLAM
     Indication: Product used for unknown indication
  10. VITAMIN D [Concomitant]
     Active Substance: VITAMIN D NOS
     Indication: Product used for unknown indication
  11. PEPCID [Concomitant]
     Active Substance: FAMOTIDINE
     Indication: Product used for unknown indication
  12. METHOTREXATE [Suspect]
     Active Substance: METHOTREXATE
     Indication: Product used for unknown indication
     Route: 065
  13. NORVASC [Suspect]
     Active Substance: AMLODIPINE BESYLATE
     Indication: Blood pressure management
     Route: 065
  14. PLAQUENIL [Suspect]
     Active Substance: HYDROXYCHLOROQUINE SULFATE
     Indication: Product used for unknown indication
     Route: 065
  15. GABAPENTIN [Concomitant]
     Active Substance: GABAPENTIN
     Indication: Product used for unknown indication

REACTIONS (22)
  - Oral surgery [Unknown]
  - Burning sensation [Unknown]
  - Respiratory tract infection [Recovered/Resolved]
  - Rheumatoid arthritis [Unknown]
  - Chest pain [Unknown]
  - Back pain [Unknown]
  - Pustular psoriasis [Unknown]
  - Dyspnoea [Recovered/Resolved]
  - Vomiting projectile [Unknown]
  - Drug ineffective [Unknown]
  - Nasal congestion [Unknown]
  - Chest discomfort [Recovered/Resolved]
  - Diarrhoea [Unknown]
  - Oropharyngeal pain [Unknown]
  - Visual impairment [Unknown]
  - Condition aggravated [Unknown]
  - Arthralgia [Unknown]
  - Oral pustule [Unknown]
  - Respiratory tract congestion [Recovered/Resolved]
  - Rash [Unknown]
  - Drug intolerance [Unknown]
  - Back disorder [Unknown]
